FAERS Safety Report 7991593-6 (Version None)
Quarter: 2011Q4

REPORT INFORMATION
  Report Type: 
  Country: None (occurrence: None)
  Receive Date: 20111219
  Receipt Date: 20111129
  Transmission Date: 20120403
  Serious: No
  Sender: FDA-Public Use
  Company Number: US-ALLERGAN-0901344US

PATIENT
  Age: 61 Year
  Sex: Female

DRUGS (3)
  1. LUMIGAN [Suspect]
     Indication: OCULAR HYPERTENSION
  2. VASORELIC [Concomitant]
     Indication: HYPERTENSION
  3. LUMIGAN [Suspect]
     Indication: OCULAR HYPERTENSION
     Dosage: 1 GTT, QHS
     Route: 047
     Dates: start: 20090101

REACTIONS (2)
  - BURNING SENSATION [None]
  - OCULAR HYPERAEMIA [None]
